FAERS Safety Report 23239361 (Version 2)
Quarter: 2023Q4

REPORT INFORMATION
  Report Type: Spontaneous
  Country: US (occurrence: US)
  Receive Date: 20231129
  Receipt Date: 20231205
  Transmission Date: 20240110
  Serious: Yes (Hospitalization, Other)
  Sender: FDA-Public Use
  Company Number: US-BRISTOL-MYERS SQUIBB COMPANY-2023-170019

PATIENT
  Age: 77 Year
  Sex: Female

DRUGS (3)
  1. BELATACEPT [Suspect]
     Active Substance: BELATACEPT
     Indication: Kidney transplant rejection
     Dates: start: 2021
  2. MYCOPHENOLATE MOFETIL [Suspect]
     Active Substance: MYCOPHENOLATE MOFETIL
     Indication: Kidney transplant rejection
     Dates: start: 2021
  3. PREDNISONE [Suspect]
     Active Substance: PREDNISONE
     Indication: Kidney transplant rejection
     Dates: start: 2021

REACTIONS (1)
  - Progressive multifocal leukoencephalopathy [Unknown]
